FAERS Safety Report 9228186 (Version 2)
Quarter: 2013Q2

REPORT INFORMATION
  Report Type: Report from Study
  Country: DE (occurrence: DE)
  Receive Date: 20130412
  Receipt Date: 20130506
  Transmission Date: 20140414
  Serious: Yes (Death)
  Sender: FDA-Public Use
  Company Number: DE-ROCHE-1209287

PATIENT
  Sex: 0

DRUGS (7)
  1. ALTEPLASE [Suspect]
     Indication: ACUTE MYOCARDIAL INFARCTION
     Dosage: BOLUS DOSE OF 15 MG OF ALTEPLASE FOLLOWED BY AN INFUSION OF 35 MG OVER THE NEXT 60 MINUTES.
     Route: 042
  2. ASPIRIN [Suspect]
     Indication: ACUTE MYOCARDIAL INFARCTION
     Route: 065
  3. ASPIRIN [Suspect]
     Route: 065
  4. ABCIXIMAB [Suspect]
     Indication: ACUTE MYOCARDIAL INFARCTION
     Dosage: BOLUS OF 0.25 MG/KG BODY WEIGHT FOLLOWED BY A CONTINUOUS INFUSION OF 0.125 MCG/KG/MINUTE (UP TO A MA
     Route: 065
  5. CLOPIDOGREL [Suspect]
     Indication: ACUTE MYOCARDIAL INFARCTION
     Dosage: 75 MG (NR,POSTINTERVENTIONAL FOR 4 WEEKS)
     Route: 065
  6. HEPARIN [Suspect]
     Indication: ACUTE MYOCARDIAL INFARCTION
     Dosage: 60 U/KG BODY WEIGHT UP TO A DOSE OF 5000 U
     Route: 042
  7. TICLOPIDINE [Suspect]
     Indication: ACUTE MYOCARDIAL INFARCTION
     Route: 065

REACTIONS (1)
  - Death [Fatal]
